FAERS Safety Report 9816297 (Version 2)
Quarter: 2014Q1

REPORT INFORMATION
  Report Type: Spontaneous
  Country: IT (occurrence: IT)
  Receive Date: 20140114
  Receipt Date: 20140116
  Transmission Date: 20141002
  Serious: Yes (Other)
  Sender: FDA-Public Use
  Company Number: IT-GILEAD-2014-0091971

PATIENT
  Age: 69 Year
  Sex: Male

DRUGS (7)
  1. VIREAD [Suspect]
     Indication: HEPATITIS B
     Dosage: 245 MG, UNK
     Route: 048
     Dates: start: 20131126, end: 20131128
  2. ALLOPURINOL [Concomitant]
     Dosage: 1 DF, UNK
     Route: 048
     Dates: start: 20130101, end: 20131128
  3. FOLINA                             /00024201/ [Concomitant]
     Dosage: 5 MG, UNK
     Route: 048
     Dates: start: 20130101, end: 20131128
  4. CYMBALTA [Concomitant]
     Dosage: 60 MG, UNK
     Route: 048
     Dates: start: 20130101, end: 20131128
  5. LYRICA [Concomitant]
     Dosage: 450 MG, UNK
     Route: 048
     Dates: start: 20130101, end: 20131128
  6. DELTACORTENE [Concomitant]
     Dosage: 12.5 MG, UNK
     Route: 048
     Dates: start: 20130101, end: 20131128
  7. COUMADIN                           /00014802/ [Concomitant]
     Dosage: 1 DF, UNK
     Route: 048
     Dates: start: 20130101, end: 20131128

REACTIONS (4)
  - Hypertensive crisis [Recovering/Resolving]
  - Headache [Recovering/Resolving]
  - Vertigo [Recovering/Resolving]
  - Vomiting [Recovering/Resolving]
